FAERS Safety Report 9265838 (Version 3)
Quarter: 2013Q3

REPORT INFORMATION
  Report Type: Spontaneous
  Country: JP (occurrence: JP)
  Receive Date: 20130501
  Receipt Date: 20130722
  Transmission Date: 20140515
  Serious: Yes (Hospitalization)
  Sender: FDA-Public Use
  Company Number: JP-GLAXOSMITHKLINE-B0887729A

PATIENT
  Sex: Male

DRUGS (13)
  1. LAMICTAL [Suspect]
     Indication: BIPOLAR II DISORDER
     Dosage: 100MG TWICE PER DAY
     Route: 048
     Dates: start: 2012
  2. MIRTAZAPINE [Suspect]
     Indication: PRODUCT USED FOR UNKNOWN INDICATION
     Dosage: 15MG THREE TIMES PER DAY
     Route: 048
     Dates: start: 201304
  3. ZOLPIDEM TARTRATE [Concomitant]
     Dosage: 10MG PER DAY
     Route: 048
  4. BALDEKEN-R [Concomitant]
     Route: 048
  5. AROTINOLOL HYDROCHLORIDE [Concomitant]
     Dosage: 5MG TWICE PER DAY
     Route: 048
  6. MEVALOTIN [Concomitant]
     Dosage: 10MG PER DAY
     Route: 048
  7. SEIBULE [Concomitant]
     Route: 048
  8. METGLUCO [Concomitant]
     Route: 048
  9. HUMALOG [Concomitant]
     Route: 058
  10. LANTUS [Concomitant]
     Route: 058
  11. MEDET [Concomitant]
     Route: 048
     Dates: end: 201212
  12. MEDET [Concomitant]
     Route: 048
     Dates: start: 20121225, end: 201301
  13. MEDET [Concomitant]
     Route: 048
     Dates: start: 20130129

REACTIONS (3)
  - Blood glucose increased [Recovered/Resolved]
  - Diabetes mellitus inadequate control [Recovering/Resolving]
  - Weight increased [Unknown]
